FAERS Safety Report 5262292-9 (Version None)
Quarter: 2007Q1

REPORT INFORMATION
  Report Type: 
  Country: None (occurrence: None)
  Receive Date: 20070308
  Receipt Date: 20070224
  Transmission Date: 20070707
  Serious: Yes (Other)
  Sender: FDA-Public Use
  Company Number: T200601752

PATIENT
  Age: 60 Year
  Sex: Male
  Weight: 42 kg

DRUGS (3)
  1. OPTIRAY(OVERSOL) SOLUTION, 350 [Suspect]
     Indication: ARTERIOGRAM CORONARY
     Dosage: 50 ML, SINGLE, INTRA-ARTERIAL
     Route: 013
     Dates: start: 20061020, end: 20061020
  2. CEFAZOLIN [Suspect]
  3. HEPARIN [Suspect]

REACTIONS (4)
  - ANAPHYLACTIC SHOCK [None]
  - ARRHYTHMIA [None]
  - PRURITUS GENERALISED [None]
  - RASH GENERALISED [None]
